FAERS Safety Report 25647633 (Version 3)
Quarter: 2025Q3

REPORT INFORMATION
  Report Type: Report from Study
  Country: US (occurrence: US)
  Receive Date: 20250806
  Receipt Date: 20250829
  Transmission Date: 20251021
  Serious: Yes (Death, Hospitalization, Other)
  Sender: SUNOVION
  Company Number: US-SUMITOMO PHARMA SWITZERLAND GMBH-2025SPA004522

PATIENT
  Age: 81 Year
  Sex: Male

DRUGS (3)
  1. ORGOVYX [Suspect]
     Active Substance: RELUGOLIX
     Indication: Prostate cancer
     Route: 048
  2. ORGOVYX [Suspect]
     Active Substance: RELUGOLIX
     Dosage: 120 MG, QD
     Route: 048
     Dates: start: 20250412
  3. NUBEQA [Concomitant]
     Active Substance: DAROLUTAMIDE

REACTIONS (16)
  - Death [Fatal]
  - Blood pressure decreased [Unknown]
  - Dysuria [Unknown]
  - Dyschezia [Unknown]
  - Prostate cancer metastatic [Unknown]
  - Constipation [Unknown]
  - Renal pain [Unknown]
  - Blood urea increased [Unknown]
  - Blood creatinine increased [Unknown]
  - Catheter site haemorrhage [Unknown]
  - Conjunctivitis [Recovered/Resolved]
  - Urine output decreased [Unknown]
  - Prostatomegaly [Unknown]
  - Dyspnoea exertional [Unknown]
  - Diarrhoea [Unknown]
  - Fatigue [Unknown]

NARRATIVE: CASE EVENT DATE: 20250801
